FAERS Safety Report 19507614 (Version 2)
Quarter: 2021Q3

REPORT INFORMATION
  Report Type: Spontaneous
  Country: US (occurrence: US)
  Receive Date: 20210708
  Receipt Date: 20210908
  Transmission Date: 20211014
  Serious: Yes (Other)
  Sender: FDA-Public Use
  Company Number: US-TEVA-2021-US-1928879

PATIENT
  Age: 51 Year
  Sex: Male

DRUGS (13)
  1. PRESERVATIVE FREE MORPHINE [Suspect]
     Active Substance: MORPHINE
     Indication: CANCER PAIN
     Dosage: 960 MICROGRAM DAILY; INTRATHECAL INFUSION
     Route: 037
  2. PRESERVATIVE FREE MORPHINE [Suspect]
     Active Substance: MORPHINE
     Dosage: 1.89 MILLIGRAM DAILY; INTRATHECAL PUMP (INFUSION)
     Route: 037
     Dates: start: 20180613
  3. DULOXETINE. [Suspect]
     Active Substance: DULOXETINE
     Indication: CANCER PAIN
     Dosage: 60 MILLIGRAM DAILY;
     Route: 065
  4. PRESERVATIVE FREE MORPHINE [Suspect]
     Active Substance: MORPHINE
     Dosage: 1.439 MILLIGRAM DAILY; INTRATHECAL PUMP (INFUSION)
     Route: 037
     Dates: start: 20180206
  5. PRESERVATIVE FREE MORPHINE [Suspect]
     Active Substance: MORPHINE
     Dosage: 2.42 MILLIGRAM DAILY; INTRATHECAL PUMP (INFUSION)
     Route: 037
     Dates: start: 20181009
  6. OXYCODONE [Suspect]
     Active Substance: OXYCODONE
     Indication: CANCER PAIN
     Dosage: 240 MILLIGRAM DAILY;
     Route: 065
  7. PRESERVATIVE FREE MORPHINE [Suspect]
     Active Substance: MORPHINE
     Dosage: 2 MILLIGRAM DAILY; INTRATHECAL PUMP (INFUSION)
     Route: 037
     Dates: start: 20180726
  8. PRESERVATIVE FREE MORPHINE [Suspect]
     Active Substance: MORPHINE
     Dosage: 2.2 MILLIGRAM DAILY; INTRATHECAL PUMP (INFUSION)
     Route: 037
     Dates: start: 20180925
  9. PRESERVATIVE FREE MORPHINE [Suspect]
     Active Substance: MORPHINE
     Indication: CANCER PAIN
     Dosage: 1.2 MILLIGRAM DAILY; INTRATHECAL PUMP (INFUSION)?PRESERVATIVE FREE MORPHINE
     Route: 037
     Dates: start: 20171229
  10. GABAPENTIN. [Suspect]
     Active Substance: GABAPENTIN
     Indication: CANCER PAIN
     Dosage: THREE TIMES EVERYDAY
     Route: 065
  11. METHADONE [Suspect]
     Active Substance: METHADONE HYDROCHLORIDE
     Indication: CANCER PAIN
     Dosage: 40 MILLIGRAM DAILY;
     Route: 065
  12. PRESERVATIVE FREE MORPHINE [Suspect]
     Active Substance: MORPHINE
     Dosage: 1200 MICROGRAM DAILY; INTRATHECAL INFUSION
     Route: 037
  13. PRESERVATIVE FREE MORPHINE [Suspect]
     Active Substance: MORPHINE
     Dosage: 1.726 MILLIGRAM DAILY; INTRATHECAL PUMP (INFUSION)
     Route: 037
     Dates: start: 20180417

REACTIONS (2)
  - Drug ineffective [Unknown]
  - Arachnoiditis [Recovering/Resolving]
